FAERS Safety Report 8234657-4 (Version None)
Quarter: 2012Q1

REPORT INFORMATION
  Report Type: 
  Country: None (occurrence: None)
  Receive Date: 20120326
  Receipt Date: 20120322
  Transmission Date: 20120608
  Serious: No
  Sender: FDA-Public Use
  Company Number: US-PFIZER INC-2012075377

PATIENT
  Sex: Female
  Weight: 79.819 kg

DRUGS (3)
  1. METHOCARBAMOL [Suspect]
     Indication: PAIN
     Dosage: 500 MG, 2X/DAY
  2. IBUPROFEN (ADVIL) [Suspect]
     Indication: PAIN
     Dosage: UNK
     Dates: start: 20030101
  3. ACETAMINOPHEN AND OXYCODONE HCL [Suspect]
     Indication: PAIN
     Dosage: 5/325 MG, 2X/DAY

REACTIONS (3)
  - DRUG INEFFECTIVE [None]
  - ARTHRALGIA [None]
  - PAIN IN EXTREMITY [None]
